FAERS Safety Report 11654379 (Version 1)
Quarter: 2015Q4

REPORT INFORMATION
  Report Type: Spontaneous
  Country: JP (occurrence: JP)
  Receive Date: 20151023
  Receipt Date: 20151023
  Transmission Date: 20160304
  Serious: Yes (Other)
  Sender: FDA-Public Use
  Company Number: JP-ROCHE-1648926

PATIENT
  Age: 47 Year
  Sex: Female

DRUGS (1)
  1. XELODA [Suspect]
     Active Substance: CAPECITABINE
     Indication: RECTAL CANCER
     Dosage: DOSAGE IS UNCERTAIN.?STRENGTH 300
     Route: 048
     Dates: start: 201307

REACTIONS (5)
  - Ovarian neoplasm [Unknown]
  - Deep vein thrombosis [Unknown]
  - Metastases to peritoneum [Unknown]
  - Off label use [Unknown]
  - Inguinal hernia [Unknown]
